FAERS Safety Report 20432151 (Version 1)
Quarter: 2022Q1

REPORT INFORMATION
  Report Type: Spontaneous
  Country: US (occurrence: None)
  Receive Date: 20220204
  Receipt Date: 20220204
  Transmission Date: 20220423
  Serious: Yes (Other)
  Sender: FDA-Public Use
  Company Number: None

PATIENT
  Age: 44 Year
  Sex: Female
  Weight: 86.7 kg

DRUGS (23)
  1. TOCILIZUMAB [Suspect]
     Active Substance: TOCILIZUMAB
     Indication: Acute respiratory failure
     Dosage: OTHER FREQUENCY : ONCE;?
     Route: 042
     Dates: start: 20220106, end: 20220106
  2. TOCILIZUMAB [Suspect]
     Active Substance: TOCILIZUMAB
     Indication: COVID-19
  3. ALBUTEROL [Concomitant]
     Active Substance: ALBUTEROL
     Dates: start: 20220107
  4. ALBUTEROL\IPRATROPIUM [Concomitant]
     Active Substance: ALBUTEROL\IPRATROPIUM
     Dates: start: 20220104
  5. AZITHROMYCIN [Concomitant]
     Active Substance: AZITHROMYCIN
     Dates: start: 20220104
  6. BENZONATATE [Concomitant]
     Active Substance: BENZONATATE
     Dates: start: 20220104
  7. CEFEPIME [Concomitant]
     Active Substance: CEFEPIME HYDROCHLORIDE
     Dates: start: 20220122, end: 20220126
  8. CEFTRIAXONE [Concomitant]
     Active Substance: CEFTRIAXONE
     Dates: start: 20220104
  9. CODEINE-GUAIFENESIN [Concomitant]
     Active Substance: CODEINE PHOSPHATE\GUAIFENESIN
     Dates: start: 20220123
  10. DEXAMETHASONE [Concomitant]
     Active Substance: DEXAMETHASONE
     Dates: start: 20220104
  11. DICLOFENAC [Concomitant]
     Active Substance: DICLOFENAC
  12. ENOXAPARIN [Concomitant]
     Active Substance: ENOXAPARIN
     Dates: start: 20220105, end: 20220128
  13. GUAIFENESIN [Concomitant]
     Active Substance: GUAIFENESIN
     Dates: start: 20220104
  14. HEPARIN [Concomitant]
     Active Substance: HEPARIN SODIUM
  15. LIDOCAINE [Concomitant]
     Active Substance: LIDOCAINE
  16. METHYLPREDNISOLONE [Concomitant]
     Active Substance: METHYLPREDNISOLONE
     Dates: start: 20220108, end: 20220124
  17. MORPHINE [Concomitant]
     Active Substance: MORPHINE
     Dates: start: 20220124
  18. ONDANSETRON [Concomitant]
     Active Substance: ONDANSETRON
     Dates: start: 20220104
  19. PANTOPRAZOLE [Concomitant]
     Active Substance: PANTOPRAZOLE
     Dates: start: 20220107
  20. Phenol Topical [Concomitant]
     Dates: start: 20220110
  21. PREDNISONE [Concomitant]
     Active Substance: PREDNISONE
     Dates: start: 20220122
  22. REMDESIVIR [Concomitant]
     Active Substance: REMDESIVIR
     Dates: start: 20220104, end: 20220108
  23. VANCOMYCIN [Concomitant]
     Active Substance: VANCOMYCIN
     Dates: start: 20220122, end: 20220126

REACTIONS (6)
  - Sinus tachycardia [None]
  - Deep vein thrombosis [None]
  - Pulmonary embolism [None]
  - Cardiomyopathy [None]
  - Pulmonary fibrosis [None]
  - Chest pain [None]

NARRATIVE: CASE EVENT DATE: 20220125
